FAERS Safety Report 24754998 (Version 1)
Quarter: 2024Q4

REPORT INFORMATION
  Report Type: Spontaneous
  Country: PK (occurrence: PK)
  Receive Date: 20241219
  Receipt Date: 20241219
  Transmission Date: 20250114
  Serious: Yes (Other)
  Sender: AMGEN
  Company Number: PK-AMGEN-PAKSP2024247074

PATIENT
  Age: 26 Year

DRUGS (1)
  1. XGEVA [Suspect]
     Active Substance: DENOSUMAB
     Indication: Bone giant cell tumour
     Dosage: 120 MILLIGRAM, ON DAY - 1, DAY-8, DAY-15, DAY-29, DAY 57, DAY 85
     Route: 058

REACTIONS (1)
  - Bone giant cell tumour [Unknown]
